FAERS Safety Report 15486180 (Version 1)
Quarter: 2018Q4

REPORT INFORMATION
  Report Type: Spontaneous
  Country: NL (occurrence: NL)
  Receive Date: 20181011
  Receipt Date: 20181011
  Transmission Date: 20190205
  Serious: Yes (Other)
  Sender: FDA-Public Use
  Company Number: NL-TEVA-2018-NL-962384

PATIENT
  Age: 36 Year
  Sex: Female

DRUGS (4)
  1. VENTOLIN DISKUS 200MCG 60DO [Concomitant]
  2. ETHINYLESTRADIOL/LEVONORGESTREL TABLET, 30/150 ?G (MICROGRAM) [Interacting]
     Active Substance: ETHINYL ESTRADIOL\LEVONORGESTREL
     Indication: PRODUCT USED FOR UNKNOWN INDICATION
     Dosage: 1X PER DAG 1 TABLET
     Route: 065
     Dates: start: 20140114
  3. FLIXOTIDE DISK 500MCG 60DO [Concomitant]
  4. CLINDAMYCIN CAPSULE, 300 MG (MILLIGRAM) [Suspect]
     Active Substance: CLINDAMYCIN
     Indication: PRODUCT USED FOR UNKNOWN INDICATION
     Dosage: 2X PER DAG 1 CAPSULE
     Route: 065
     Dates: start: 20180803

REACTIONS (2)
  - Pregnancy on oral contraceptive [Not Recovered/Not Resolved]
  - Drug interaction [Not Recovered/Not Resolved]

NARRATIVE: CASE EVENT DATE: 20180918
